FAERS Safety Report 25564384 (Version 1)
Quarter: 2025Q3

REPORT INFORMATION
  Report Type: Spontaneous
  Country: US (occurrence: US)
  Receive Date: 20250716
  Receipt Date: 20250716
  Transmission Date: 20251021
  Serious: Yes (Hospitalization)
  Sender: CSL BEHRING
  Company Number: US-BEH-2025212635

PATIENT
  Age: 38 Year
  Sex: Male

DRUGS (6)
  1. IDELVION [Suspect]
     Active Substance: COAGULATION FACTOR IX RECOMBINANT HUMAN
     Indication: Factor IX deficiency
     Dosage: 3000 IU, QW
     Route: 042
     Dates: start: 201803
  2. IDELVION [Suspect]
     Active Substance: COAGULATION FACTOR IX RECOMBINANT HUMAN
     Indication: Factor IX deficiency
     Dosage: 3000 IU, QW
     Route: 042
     Dates: start: 201803
  3. IDELVION [Suspect]
     Active Substance: COAGULATION FACTOR IX RECOMBINANT HUMAN
     Dosage: 3000 IU, QW
     Route: 042
     Dates: start: 201803
  4. IDELVION [Suspect]
     Active Substance: COAGULATION FACTOR IX RECOMBINANT HUMAN
     Dosage: 3000 IU, QW
     Route: 042
     Dates: start: 201803
  5. IDELVION [Suspect]
     Active Substance: COAGULATION FACTOR IX RECOMBINANT HUMAN
     Dosage: 3000 IU, QW
     Route: 042
     Dates: start: 201803
  6. IDELVION [Suspect]
     Active Substance: COAGULATION FACTOR IX RECOMBINANT HUMAN
     Dosage: 3000 IU, QW
     Route: 042
     Dates: start: 201803

REACTIONS (2)
  - Upper limb fracture [Unknown]
  - Fall [Unknown]

NARRATIVE: CASE EVENT DATE: 20250617
